FAERS Safety Report 18260632 (Version 1)
Quarter: 2020Q3

REPORT INFORMATION
  Report Type: Spontaneous
  Country: US (occurrence: US)
  Receive Date: 20200914
  Receipt Date: 20200914
  Transmission Date: 20201103
  Serious: Yes (Life-Threatening, Hospitalization, Other)
  Sender: FDA-Public Use
  Company Number: US-STRIDES ARCOLAB LIMITED-2020SP000378

PATIENT
  Age: 65 Year
  Sex: Female

DRUGS (7)
  1. TACROLIMUS. [Suspect]
     Active Substance: TACROLIMUS
     Indication: LIVER TRANSPLANT
     Dosage: UNK
     Route: 065
  2. EVEROLIMUS. [Suspect]
     Active Substance: EVEROLIMUS
     Indication: IMMUNOSUPPRESSANT DRUG THERAPY
  3. SOLU?MEDROL [Suspect]
     Active Substance: METHYLPREDNISOLONE SODIUM SUCCINATE
     Indication: IMMUNOSUPPRESSANT DRUG THERAPY
  4. TACROLIMUS. [Suspect]
     Active Substance: TACROLIMUS
     Indication: IMMUNOSUPPRESSANT DRUG THERAPY
  5. THYMOGLOBULIN [Suspect]
     Active Substance: LAPINE T-LYMPHOCYTE IMMUNE GLOBULIN
     Indication: IMMUNOSUPPRESSANT DRUG THERAPY
     Dosage: UNK
     Route: 065
  6. EVEROLIMUS. [Suspect]
     Active Substance: EVEROLIMUS
     Indication: LIVER TRANSPLANT
     Dosage: UNK
     Route: 065
  7. SOLU?MEDROL [Suspect]
     Active Substance: METHYLPREDNISOLONE SODIUM SUCCINATE
     Indication: TRANSPLANT REJECTION
     Dosage: UNK
     Route: 065

REACTIONS (17)
  - Central nervous system viral infection [Not Recovered/Not Resolved]
  - Nausea [Unknown]
  - Jaundice [Unknown]
  - Enterococcal infection [Unknown]
  - Escherichia urinary tract infection [Not Recovered/Not Resolved]
  - Muscle contractions involuntary [Unknown]
  - Tremor [Unknown]
  - West Nile viral infection [Not Recovered/Not Resolved]
  - Respiratory failure [Unknown]
  - Diarrhoea [Unknown]
  - Paralysis [Not Recovered/Not Resolved]
  - Headache [Unknown]
  - Lethargy [Unknown]
  - Transplant rejection [Recovered/Resolved]
  - Malaise [Unknown]
  - Vomiting [Unknown]
  - Pyrexia [Unknown]
